FAERS Safety Report 18688111 (Version 1)
Quarter: 2020Q4

REPORT INFORMATION
  Report Type: Spontaneous
  Country: US (occurrence: US)
  Receive Date: 20201231
  Receipt Date: 20201231
  Transmission Date: 20210114
  Serious: Yes (Hospitalization, Other)
  Sender: FDA-Public Use
  Company Number: US-009507513-2012USA010504

PATIENT
  Sex: Female

DRUGS (8)
  1. DECADRON [Suspect]
     Active Substance: DEXAMETHASONE
     Indication: PREMEDICATION
     Dosage: 4 (UNITS NOT PROVIDED)
     Route: 048
     Dates: start: 20201217
  2. LEVOTHYROXINE SODIUM. [Concomitant]
     Active Substance: LEVOTHYROXINE SODIUM
     Dosage: UNK
     Route: 048
  3. SYMBICORT [Concomitant]
     Active Substance: BUDESONIDE\FORMOTEROL FUMARATE DIHYDRATE
  4. SARS-COV-2 SPIKE PROTEIN MRNA VACCINE [Suspect]
     Active Substance: COVID-19 VACCINE
     Dosage: UNK
     Route: 030
     Dates: start: 20201217
  5. EPINEPHRINE. [Suspect]
     Active Substance: EPINEPHRINE
     Dosage: UNK
     Dates: start: 20201217
  6. RABIES VACCINE (UNSPECIFIED) [Suspect]
     Active Substance: RABIES VACCINE
     Dosage: UNK
  7. BENADRYL [Suspect]
     Active Substance: DIPHENHYDRAMINE HYDROCHLORIDE
     Indication: PREMEDICATION
     Dosage: 25 (UNITS NOT PROVIDED)
     Dates: start: 20201217
  8. SINGULAIR [Concomitant]
     Active Substance: MONTELUKAST SODIUM
     Dosage: UNK
     Route: 048

REACTIONS (2)
  - Anaphylactic reaction [Unknown]
  - Cerebrovascular accident [Unknown]

NARRATIVE: CASE EVENT DATE: 20201217
